FAERS Safety Report 22150621 (Version 1)
Quarter: 2023Q1

REPORT INFORMATION
  Report Type: Other
  Country: None (occurrence: US)
  Receive Date: 20230329
  Receipt Date: 20230329
  Transmission Date: 20230418
  Serious: Yes (Other)
  Sender: FDA-Public Use
  Company Number: US-Appco Pharma LLC-2139650

PATIENT
  Age: 65 Year
  Sex: Male

DRUGS (2)
  1. SILDENAFIL CITRATE [Suspect]
     Active Substance: SILDENAFIL CITRATE
     Indication: Erectile dysfunction
     Route: 065
  2. TADALAFIL [Suspect]
     Active Substance: TADALAFIL
     Route: 065

REACTIONS (2)
  - Drug ineffective [Unknown]
  - Medical device site joint effusion [Recovered/Resolved]
